FAERS Safety Report 10745635 (Version 1)
Quarter: 2015Q1

REPORT INFORMATION
  Report Type: Spontaneous
  Country: US (occurrence: None)
  Receive Date: 20150114
  Receipt Date: 20150114
  Transmission Date: 20150721
  Serious: Yes (Hospitalization)
  Sender: FDA-Public Use
  Company Number: 2306985

PATIENT
  Age: 37 Year
  Sex: Male
  Weight: 72.7 kg

DRUGS (3)
  1. GEMCITABINE [Suspect]
     Active Substance: GEMCITABINE\GEMCITABINE HYDROCHLORIDE
     Indication: SOFT TISSUE SARCOMA
     Dosage: 900 MG/M 2 MILLIGRAM(S)/SQ. METER (CYCLICAL), INTRAVENOUS DRIP
     Route: 041
     Dates: start: 20140228, end: 20140307
  2. INVESTIGATIONAL DRUG [Suspect]
     Active Substance: INVESTIGATIONAL PRODUCT
     Indication: SOFT TISSUE SARCOMA
     Dates: start: 20140228
  3. DOCETAXEL. [Suspect]
     Active Substance: DOCETAXEL
     Indication: SOFT TISSUE SARCOMA
     Dosage: 75 MG/M 2 MILLIGRAM(S)/SQ. METER (CYCLICAL), INTRAVENOUS DRIP
     Route: 041
     Dates: start: 20140307

REACTIONS (2)
  - Thrombocytopenia [None]
  - Febrile neutropenia [None]

NARRATIVE: CASE EVENT DATE: 20140314
